FAERS Safety Report 13728080 (Version 4)
Quarter: 2017Q3

REPORT INFORMATION
  Report Type: Spontaneous
  Country: US (occurrence: US)
  Receive Date: 20170707
  Receipt Date: 20170731
  Transmission Date: 20171127
  Serious: No
  Sender: FDA-Public Use
  Company Number: US-PFIZER INC-2017294246

PATIENT
  Age: 72 Year
  Sex: Female

DRUGS (1)
  1. NORVASC [Suspect]
     Active Substance: AMLODIPINE BESYLATE
     Indication: BLOOD PRESSURE ABNORMAL
     Dosage: UNK

REACTIONS (6)
  - Limb discomfort [Unknown]
  - Drug ineffective [Unknown]
  - Joint swelling [Recovered/Resolved]
  - Oedema [Recovered/Resolved]
  - Peripheral swelling [Recovered/Resolved]
  - Muscle disorder [Unknown]
